FAERS Safety Report 14993563 (Version 1)
Quarter: 2018Q2

REPORT INFORMATION
  Report Type: Spontaneous
  Country: DE (occurrence: DE)
  Receive Date: 20180611
  Receipt Date: 20180611
  Transmission Date: 20180711
  Serious: Yes (Other)
  Sender: FDA-Public Use
  Company Number: DE-AUROBINDO-AUR-APL-2018-030704

PATIENT

DRUGS (8)
  1. EPIRUBICIN SOLUTION FOR INJECTION [Suspect]
     Active Substance: EPIRUBICIN
     Dosage: 100 MG/M2, UNK
     Route: 042
  2. DASATINIB. [Suspect]
     Active Substance: DASATINIB
     Indication: EWING^S SARCOMA
     Dosage: 100 MG, UNK
     Route: 048
  3. IMATINIB [Suspect]
     Active Substance: IMATINIB
     Indication: PRODUCT USED FOR UNKNOWN INDICATION
     Dosage: 50% DOSE REDUCTION, UNK
     Route: 065
  4. IMATINIB [Suspect]
     Active Substance: IMATINIB
     Dosage: FULL DOSE AFTER THE END OF RADIOTHERAPY, UNK
     Route: 065
  5. IMATINIB [Suspect]
     Active Substance: IMATINIB
     Indication: EWING^S SARCOMA
     Dosage: 400 MG, UNK
     Route: 048
  6. EPIRUBICIN SOLUTION FOR INJECTION [Suspect]
     Active Substance: EPIRUBICIN
     Indication: PRODUCT USED FOR UNKNOWN INDICATION
     Dosage: UNK
     Route: 065
  7. EPIRUBICIN SOLUTION FOR INJECTION [Suspect]
     Active Substance: EPIRUBICIN
     Indication: EWING^S SARCOMA
     Dosage: FULL DOSE AFTER THE END OF RADIOTHERAPY, UNK
     Route: 065
  8. CELECOXIB. [Suspect]
     Active Substance: CELECOXIB
     Indication: EWING^S SARCOMA
     Dosage: 200 MG, UNK
     Route: 048

REACTIONS (6)
  - Anxiety [Unknown]
  - Malignant neoplasm progression [Unknown]
  - Metastasis [Unknown]
  - Depression [Unknown]
  - Nausea [Unknown]
  - Vomiting [Unknown]
